FAERS Safety Report 22063471 (Version 3)
Quarter: 2023Q2

REPORT INFORMATION
  Report Type: Report from Study
  Country: ES (occurrence: ES)
  Receive Date: 20230306
  Receipt Date: 20230505
  Transmission Date: 20230722
  Serious: Yes (Hospitalization, Other)
  Sender: FDA-Public Use
  Company Number: ES-ABBVIE-4326598

PATIENT
  Sex: Male
  Weight: 75 kg

DRUGS (2)
  1. CARBIDOPA\LEVODOPA [Suspect]
     Active Substance: CARBIDOPA\LEVODOPA
     Indication: Parkinson^s disease
     Route: 050
     Dates: start: 20180802
  2. CARBIDOPA\LEVODOPA [Suspect]
     Active Substance: CARBIDOPA\LEVODOPA

REACTIONS (6)
  - Femur fracture [Recovering/Resolving]
  - Hallucination [Unknown]
  - Fall [Unknown]
  - Dyskinesia [Unknown]
  - Disorientation [Unknown]
  - Hip fracture [Unknown]

NARRATIVE: CASE EVENT DATE: 20230101
